FAERS Safety Report 8663036 (Version 2)
Quarter: 2012Q4

REPORT INFORMATION
  Report Type: 
  Country: CO (occurrence: CO)
  Receive Date: 20120713
  Receipt Date: 20121107
  Transmission Date: 20130627
  Serious: Yes (Other)
  Sender: FDA-Public Use
  Company Number: CO-AMGEN-COLSP2012042463

PATIENT
  Age: 67 Year
  Sex: Female

DRUGS (11)
  1. ENBREL [Suspect]
     Indication: RHEUMATOID ARTHRITIS
     Dosage: 50 mg, weekly
     Route: 058
     Dates: start: 201201
  2. PREDNISOLONE [Concomitant]
     Indication: RHEUMATOID ARTHRITIS
     Dosage: 5 mg, 1x/day
     Route: 048
     Dates: start: 1989
  3. OMEPRAZOL                          /00661201/ [Concomitant]
     Indication: GASTRITIS
     Dosage: UNK
     Route: 048
  4. OMEPRAZOL                          /00661201/ [Concomitant]
     Indication: ULCER
  5. LOSARTAN [Concomitant]
     Indication: BLOOD PRESSURE
     Dosage: 50 mg, 1x/day
     Route: 048
     Dates: start: 201204
  6. ACETAMINOPHEN [Concomitant]
     Dosage: UNK
     Route: 065
  7. FUROSEMID                          /00032601/ [Concomitant]
     Dosage: UNK
     Route: 065
  8. TERIPARATIDE [Concomitant]
     Dosage: UNK
     Route: 065
  9. ASPIRINETAS [Concomitant]
     Dosage: UNK
     Route: 065
  10. OMEPRAZOL                          /00661201/ [Concomitant]
     Indication: GASTRITIS
     Dosage: UNK
     Route: 048
  11. OMEPRAZOL                          /00661201/ [Concomitant]
     Indication: ULCER

REACTIONS (8)
  - Blood pressure increased [Recovered/Resolved]
  - Arthralgia [Not Recovered/Not Resolved]
  - Joint swelling [Not Recovered/Not Resolved]
  - Pain in extremity [Not Recovered/Not Resolved]
  - Musculoskeletal pain [Not Recovered/Not Resolved]
  - Neck pain [Not Recovered/Not Resolved]
  - Hypokinesia [Not Recovered/Not Resolved]
  - Malaise [Not Recovered/Not Resolved]
